FAERS Safety Report 11745708 (Version 1)
Quarter: 2015Q4

REPORT INFORMATION
  Report Type: Spontaneous
  Country: US (occurrence: None)
  Receive Date: 20151116
  Receipt Date: 20151116
  Transmission Date: 20160304
  Serious: Yes (Life-Threatening, Hospitalization, Disabling, Other)
  Sender: FDA-Public Use
  Company Number: None

PATIENT
  Age: 63 Year
  Sex: Male
  Weight: 102.06 kg

DRUGS (12)
  1. BI-PAP [Concomitant]
     Active Substance: DEVICE
  2. RENAVITE [Concomitant]
     Active Substance: ASCORBIC ACID\BIOTIN\CALCIUM PANTOTHENATE\CYANOCOBALAMIN\FOLIC ACID\NIACINAMIDE\PYRIDOXINE HYDROCHLORIDE\RIBOFLAVIN\THIAMINE MONONITRATE
  3. INSULIN PUMP [Concomitant]
     Active Substance: INSULIN NOS
  4. ZETIA [Concomitant]
     Active Substance: EZETIMIBE
  5. ZYRTEC [Concomitant]
     Active Substance: CETIRIZINE HYDROCHLORIDE
  6. LOW DOSE ASPIRIN [Concomitant]
     Active Substance: ASPIRIN
  7. PHOSLO [Concomitant]
     Active Substance: CALCIUM ACETATE
  8. HYDROCHLORIDE [Concomitant]
     Active Substance: UNSPECIFIED INGREDIENT
  9. TANZEUM [Suspect]
     Active Substance: ALBIGLUTIDE
     Indication: DIABETES MELLITUS
     Dosage: 30 MG INJECTION, GIVEN INTO/UNDER SKIN
     Dates: start: 20150119, end: 20150511
  10. ARICEPT [Concomitant]
     Active Substance: DONEPEZIL HYDROCHLORIDE
  11. NAMENDA [Concomitant]
     Active Substance: MEMANTINE HYDROCHLORIDE
  12. FISH OIL [Concomitant]
     Active Substance: FISH OIL

REACTIONS (6)
  - Renal failure [None]
  - Pancreatitis [None]
  - Loss of consciousness [None]
  - Circulatory collapse [None]
  - Dialysis [None]
  - Economic problem [None]

NARRATIVE: CASE EVENT DATE: 20150520
